FAERS Safety Report 11558067 (Version 1)
Quarter: 2015Q3

REPORT INFORMATION
  Report Type: Spontaneous
  Country: US (occurrence: None)
  Receive Date: 20150925
  Receipt Date: 20150925
  Transmission Date: 20151125
  Serious: No
  Sender: FDA-Public Use
  Company Number: None

PATIENT
  Sex: Female

DRUGS (2)
  1. ESCITALOPRAM [Concomitant]
     Active Substance: ESCITALOPRAM OXALATE
  2. BUPROPION. [Suspect]
     Active Substance: BUPROPION

REACTIONS (4)
  - Product substitution issue [None]
  - Job dissatisfaction [None]
  - Product quality issue [None]
  - Bipolar disorder [None]

NARRATIVE: CASE EVENT DATE: 20150515
